FAERS Safety Report 6503340-5 (Version None)
Quarter: 2009Q4

REPORT INFORMATION
  Report Type: 
  Country: None (occurrence: None)
  Receive Date: 20091217
  Receipt Date: 20091207
  Transmission Date: 20100525
  Serious: Yes (Hospitalization, Other)
  Sender: FDA-Public Use
  Company Number: US-ELI_LILLY_AND_COMPANY-US200912001538

PATIENT
  Age: 37 Year
  Sex: Female

DRUGS (4)
  1. FORTEO [Suspect]
     Indication: OSTEOPOROSIS
     Dosage: UNK, DAILY (1/D)
     Dates: start: 20090501, end: 20091203
  2. PEGASYS [Concomitant]
     Indication: HEPATITIS C
     Dates: end: 20091203
  3. ANALGESICS [Concomitant]
  4. SOMA [Concomitant]

REACTIONS (2)
  - BONE MARROW DISORDER [None]
  - WHITE BLOOD CELL COUNT DECREASED [None]
